FAERS Safety Report 11554195 (Version 4)
Quarter: 2018Q3

REPORT INFORMATION
  Report Type: Spontaneous
  Country: US (occurrence: US)
  Receive Date: 20150925
  Receipt Date: 20180822
  Transmission Date: 20181010
  Serious: No
  Sender: FDA-Public Use
  Company Number: US-ACTELION PHARMACEUTICALS US, INC.-A-US2014-107153

PATIENT
  Age: 72 Year
  Sex: Female

DRUGS (3)
  1. FELODIPINE. [Concomitant]
     Active Substance: FELODIPINE
  2. TRACLEER [Suspect]
     Active Substance: BOSENTAN
     Indication: PULMONARY ARTERIAL HYPERTENSION
     Dosage: 62.5 MG, BID
     Route: 048
     Dates: start: 20140716
  3. SILDENAFIL. [Suspect]
     Active Substance: SILDENAFIL
     Indication: PRODUCT USED FOR UNKNOWN INDICATION
     Route: 065

REACTIONS (9)
  - Condition aggravated [Unknown]
  - Epistaxis [Unknown]
  - Dry mouth [Unknown]
  - Seasonal allergy [Unknown]
  - Nasal dryness [Unknown]
  - Multiple allergies [Unknown]
  - Sinus congestion [Unknown]
  - Sinus disorder [Unknown]
  - Feeling abnormal [Unknown]
